FAERS Safety Report 13070514 (Version 1)
Quarter: 2016Q4

REPORT INFORMATION
  Report Type: Spontaneous
  Country: DK (occurrence: DK)
  Receive Date: 20161229
  Receipt Date: 20161229
  Transmission Date: 20170207
  Serious: Yes (Disabling)
  Sender: FDA-Public Use
  Company Number: DK-BAXTER-2016BAX064465

PATIENT
  Sex: Female

DRUGS (11)
  1. SENDOXAN [Suspect]
     Active Substance: CYCLOPHOSPHAMIDE
     Dosage: THIRD SERIES EC
     Route: 065
     Dates: start: 20131014
  2. DOCETAXEL ACTAVIS [Suspect]
     Active Substance: DOCETAXEL
     Dosage: THIRD SERIES
     Route: 065
     Dates: start: 20131216
  3. TAMOXIFEN [Suspect]
     Active Substance: TAMOXIFEN
     Dosage: DOSE RE-INTRODUCED
     Route: 065
     Dates: end: 201412
  4. SENDOXAN [Suspect]
     Active Substance: CYCLOPHOSPHAMIDE
     Indication: BREAST CANCER
     Dosage: FIRST SERIES EC
     Route: 065
     Dates: start: 20130830
  5. DOCETAXEL ACTAVIS [Suspect]
     Active Substance: DOCETAXEL
     Dosage: SECOND SERIES
     Route: 065
     Dates: start: 20131125
  6. TAMOXIFEN [Suspect]
     Active Substance: TAMOXIFEN
     Indication: BREAST CANCER
     Route: 065
     Dates: start: 2014
  7. SENDOXAN [Suspect]
     Active Substance: CYCLOPHOSPHAMIDE
     Dosage: SECOND SERIES EC
     Route: 065
     Dates: start: 20130923
  8. DOCETAXEL ACTAVIS [Suspect]
     Active Substance: DOCETAXEL
     Indication: BREAST CANCER
     Dosage: FIRST SERIES
     Route: 065
     Dates: start: 20131104
  9. EPIRUBICIN ACTAVIS [Suspect]
     Active Substance: EPIRUBICIN
     Dosage: SECOND SERIES EC
     Route: 065
     Dates: start: 20130923
  10. EPIRUBICIN ACTAVIS [Suspect]
     Active Substance: EPIRUBICIN
     Dosage: THIRD SERIES EC
     Route: 065
     Dates: start: 20131014
  11. EPIRUBICIN ACTAVIS [Suspect]
     Active Substance: EPIRUBICIN
     Indication: BREAST CANCER
     Dosage: FIRST SERIES EC
     Route: 065
     Dates: start: 20130830

REACTIONS (7)
  - Vestibular disorder [Unknown]
  - Balance disorder [Unknown]
  - Oral pain [Unknown]
  - Dizziness [Unknown]
  - Tooth disorder [Recovered/Resolved]
  - Oral fungal infection [Unknown]
  - Fall [Unknown]

NARRATIVE: CASE EVENT DATE: 2013
